FAERS Safety Report 5889521-2 (Version None)
Quarter: 2008Q3

REPORT INFORMATION
  Report Type: 
  Country: None (occurrence: None)
  Receive Date: 20080919
  Receipt Date: 20080912
  Transmission Date: 20090109
  Serious: Yes (Hospitalization)
  Sender: FDA-Public Use
  Company Number: JP-ASTRAZENECA-2008SE04376

PATIENT
  Age: 76 Year
  Sex: Female

DRUGS (12)
  1. BLOPRESS [Suspect]
     Indication: CARDIAC FAILURE CHRONIC
     Route: 048
     Dates: start: 20070525
  2. BENET [Concomitant]
     Indication: OSTEOPOROSIS
     Route: 048
  3. LANSOPRAZOLE [Concomitant]
     Indication: REFLUX OESOPHAGITIS
     Route: 048
  4. HALFDIGOXIN [Concomitant]
     Indication: CARDIAC FAILURE CHRONIC
     Route: 048
  5. WARFARIN SODIUM [Concomitant]
     Indication: CARDIAC FAILURE CHRONIC
     Route: 048
  6. AMLODIPINE BESYLATE [Concomitant]
     Indication: CARDIAC FAILURE CHRONIC
     Route: 048
  7. FERROMIA [Concomitant]
     Indication: IRON DEFICIENCY ANAEMIA
     Route: 048
  8. ALFAROL [Concomitant]
     Indication: OSTEOPOROSIS
     Route: 048
  9. ASPARA-CA [Concomitant]
     Indication: OSTEOPOROSIS
     Route: 048
  10. LOXONIN [Concomitant]
     Indication: RHEUMATOID ARTHRITIS
     Route: 048
  11. PREDNISOLONE [Concomitant]
     Indication: RHEUMATOID ARTHRITIS
     Route: 048
  12. RIMATIL [Concomitant]
     Indication: RHEUMATOID ARTHRITIS
     Route: 048

REACTIONS (2)
  - ANAEMIA [None]
  - GASTROINTESTINAL HAEMORRHAGE [None]
